FAERS Safety Report 4273969-6 (Version None)
Quarter: 2004Q1

REPORT INFORMATION
  Report Type: 
  Country: None (occurrence: None)
  Receive Date: 20040115
  Receipt Date: 20040105
  Transmission Date: 20041129
  Serious: Yes (Life-Threatening)
  Sender: FDA-Public Use
  Company Number: 2004193225FR

PATIENT
  Age: 90 Year
  Sex: Male

DRUGS (7)
  1. CELEBREX [Suspect]
     Dosage: 200 MG, QD, ORAL
     Route: 048
     Dates: start: 20031020, end: 20031210
  2. FLURBIPROFEN [Suspect]
     Dosage: 50 MG , ORAL
     Route: 048
     Dates: end: 20031210
  3. LASILIX [Concomitant]
  4. DIGOXIN [Concomitant]
  5. STILNOX (ZOLPIDEM) [Concomitant]
  6. MOTILIUM [Concomitant]
  7. CLARADOL CAFFEINE [Concomitant]

REACTIONS (5)
  - DUODENAL ULCER [None]
  - GASTRIC ULCER [None]
  - GASTROINTESTINAL HAEMORRHAGE [None]
  - HAEMATEMESIS [None]
  - MELAENA [None]
